FAERS Safety Report 4585112-4 (Version None)
Quarter: 2005Q1

REPORT INFORMATION
  Report Type: 
  Country: None (occurrence: None)
  Receive Date: 20050217
  Receipt Date: 20050103
  Transmission Date: 20050727
  Serious: No
  Sender: FDA-Public Use
  Company Number: US-GLAXOSMITHKLINE-A0539112A

PATIENT
  Age: 35 Year
  Sex: Female

DRUGS (12)
  1. WELLBUTRIN XL [Suspect]
     Indication: DEPRESSION
     Dosage: 300MG PER DAY
     Route: 048
     Dates: start: 20041216, end: 20041217
  2. IMITREX [Concomitant]
  3. SYNTHROID [Concomitant]
  4. NEXIUM [Concomitant]
  5. ALLEGRA [Concomitant]
  6. ZOCOR [Concomitant]
  7. LEXAPRO [Concomitant]
  8. SENOKOT [Concomitant]
  9. MULTI-VITAMIN [Concomitant]
  10. FIBERCON [Concomitant]
  11. GLUCOSAMINE [Concomitant]
  12. IBUPROFEN [Concomitant]

REACTIONS (1)
  - CHEST PAIN [None]
